FAERS Safety Report 7912931-6 (Version None)
Quarter: 2011Q4

REPORT INFORMATION
  Report Type: 
  Country: None (occurrence: None)
  Receive Date: 20111114
  Receipt Date: 20111031
  Transmission Date: 20120403
  Serious: Yes (Other)
  Sender: FDA-Public Use
  Company Number: US-ENDO PHARMACEUTICALS INC.-OPER20110284

PATIENT
  Sex: Female

DRUGS (2)
  1. OPANA ER [Suspect]
     Indication: MULTIPLE SCLEROSIS
     Route: 048
  2. OPANA ER [Suspect]
     Route: 048
     Dates: start: 20111031, end: 20111031

REACTIONS (1)
  - ACCIDENTAL OVERDOSE [None]
